FAERS Safety Report 9804160 (Version 2)
Quarter: 2014Q1

REPORT INFORMATION
  Report Type: Spontaneous
  Country: US (occurrence: None)
  Receive Date: 20140106
  Receipt Date: 20140204
  Transmission Date: 20141002
  Serious: Yes (Hospitalization)
  Sender: FDA-Public Use
  Company Number: 20130752

PATIENT
  Age: 73 Year
  Sex: Female

DRUGS (10)
  1. INJECTAFER [Suspect]
     Indication: BLOOD IRON DECREASED
     Dosage: DOSE X 2 INJECTION NOS
     Dates: start: 2013, end: 2013
  2. AMARYL [Concomitant]
  3. CELEXIA [Concomitant]
  4. CLONIDINE [Concomitant]
  5. COLCRYS [Concomitant]
  6. COREG [Concomitant]
  7. LASIX [Concomitant]
  8. NEURONTIN [Concomitant]
  9. NORVASC [Concomitant]
  10. ZETIA [Concomitant]

REACTIONS (5)
  - Abdominal pain upper [None]
  - Sensation of heaviness [None]
  - Asthenia [None]
  - Fall [None]
  - Feeling abnormal [None]
